FAERS Safety Report 4309194-X (Version None)
Quarter: 2004Q1

REPORT INFORMATION
  Report Type: 
  Country: None (occurrence: None)
  Receive Date: 20040227
  Receipt Date: 20040217
  Transmission Date: 20041129
  Serious: Yes (Death)
  Sender: FDA-Public Use
  Company Number: JP-JNJFOC-20040201533

PATIENT
  Age: 47 Year
  Sex: Male
  Weight: 73.5 kg

DRUGS (10)
  1. RISPERIDONE [Suspect]
     Indication: SCHIZOPHRENIA
     Dosage: SEE IMAGE, ORAL
     Route: 048
     Dates: start: 20001025, end: 20030209
  2. RISPERIDONE [Suspect]
     Indication: SCHIZOPHRENIA
     Dosage: SEE IMAGE, ORAL
     Route: 048
     Dates: start: 20030210, end: 20040202
  3. OLANZAPINE [Suspect]
     Indication: SCHIZOPHRENIA
     Dosage: 2.5 MG, IN 1 DAY, ORAL
     Route: 048
     Dates: start: 20040110, end: 20040202
  4. PSYCHOTROPIC AGENTS (ANTIPSYCHOTICS) [Suspect]
     Indication: ANXIETY
     Dosage: ORAL
     Route: 048
     Dates: start: 20030811, end: 20010202
  5. TRIHEXYPHENIDYL HCL [Concomitant]
  6. BIPERIDEN HYDROCHLORIDE TAB [Concomitant]
  7. BROMAZEPAM (BROMAZEPAM) [Concomitant]
  8. QUAZEPAM [Concomitant]
  9. TRIAZOLAM [Concomitant]
  10. VEGETAMIN (VEGETAMIN) [Concomitant]

REACTIONS (19)
  - ANXIETY [None]
  - ASTHENIA [None]
  - CARDIAC ARREST [None]
  - CARDIAC FAILURE ACUTE [None]
  - COMA [None]
  - DELUSION [None]
  - DRUG INTERACTION [None]
  - FALL [None]
  - FATIGUE [None]
  - FEAR [None]
  - FEELING COLD [None]
  - HYPERSOMNIA [None]
  - INCOHERENT [None]
  - MYDRIASIS [None]
  - RESPIRATORY ARREST [None]
  - RESTLESSNESS [None]
  - SUDDEN DEATH [None]
  - THOUGHT BLOCKING [None]
  - URINARY INCONTINENCE [None]
